FAERS Safety Report 13378165 (Version 3)
Quarter: 2017Q2

REPORT INFORMATION
  Report Type: Spontaneous
  Country: CH (occurrence: CH)
  Receive Date: 20170328
  Receipt Date: 20170411
  Transmission Date: 20170830
  Serious: Yes (Other)
  Sender: FDA-Public Use
  Company Number: CH-BIOGEN-2017BI00378305

PATIENT
  Age: 12 Month
  Sex: Female

DRUGS (2)
  1. TYSABRI [Suspect]
     Active Substance: NATALIZUMAB
     Indication: MATERNAL EXPOSURE TIMING UNSPECIFIED
     Route: 064
     Dates: start: 201110, end: 20160928
  2. PENICILLIN [Concomitant]
     Active Substance: PENICILLIN
     Indication: PROPHYLAXIS
     Route: 065

REACTIONS (3)
  - Talipes [Unknown]
  - Foetal exposure timing unspecified [Recovered/Resolved]
  - Low birth weight baby [Recovered/Resolved]

NARRATIVE: CASE EVENT DATE: 20170319
